FAERS Safety Report 6103954-0 (Version None)
Quarter: 2009Q1

REPORT INFORMATION
  Report Type: 
  Country: None (occurrence: None)
  Receive Date: 20090305
  Receipt Date: 20090224
  Transmission Date: 20090719
  Serious: Yes (Hospitalization)
  Sender: FDA-Public Use
  Company Number: B0561382A

PATIENT
  Sex: Female
  Weight: 2.7 kg

DRUGS (5)
  1. COMBIVIR [Suspect]
     Dates: start: 20080605, end: 20081210
  2. KALETRA [Suspect]
     Dates: start: 20080605, end: 20081210
  3. RETROVIR [Concomitant]
     Indication: PROPHYLAXIS
     Dosage: .5ML FOUR TIMES PER DAY
     Route: 048
     Dates: start: 20081211, end: 20090116
  4. DESOXYCORTICOSTERONE ACETATE [Concomitant]
     Dates: end: 20081218
  5. HYDROCORTISONE HEMISUCCINATE [Concomitant]
     Dates: end: 20081218

REACTIONS (4)
  - ANAEMIA [None]
  - BLOOD CREATINE PHOSPHOKINASE INCREASED [None]
  - DYSMORPHISM [None]
  - HYPOCALCAEMIA [None]
